FAERS Safety Report 20388988 (Version 2)
Quarter: 2022Q1

REPORT INFORMATION
  Report Type: Spontaneous
  Country: US (occurrence: US)
  Receive Date: 20220128
  Receipt Date: 20220210
  Transmission Date: 20220423
  Serious: No
  Sender: FDA-Public Use
  Company Number: US-GSKCCFUS-Case-01272748_AE-74360

PATIENT
  Sex: Male

DRUGS (2)
  1. BREO ELLIPTA [Suspect]
     Active Substance: FLUTICASONE FUROATE\VILANTEROL TRIFENATATE
     Indication: Product used for unknown indication
     Dosage: 1 PUFF(S), QD, 200/25 MCG
     Route: 055
     Dates: start: 20220114
  2. ALBUTEROL SULFATE [Suspect]
     Active Substance: ALBUTEROL SULFATE
     Indication: Product used for unknown indication
     Dosage: UNK AS NEEDED (PRN)

REACTIONS (7)
  - Headache [Not Recovered/Not Resolved]
  - Heart rate irregular [Unknown]
  - Chest discomfort [Unknown]
  - Chest pain [Unknown]
  - Memory impairment [Unknown]
  - Device use error [Unknown]
  - Drug ineffective [Unknown]
